FAERS Safety Report 8831567 (Version 1)
Quarter: 2012Q4

REPORT INFORMATION
  Report Type: 
  Country: US (occurrence: US)
  Receive Date: 20121009
  Receipt Date: 20121009
  Transmission Date: 20130627
  Serious: Yes (Hospitalization)
  Sender: FDA-Public Use
  Company Number: US-GLAXOSMITHKLINE-A0792565A

PATIENT
  Age: 57 Year
  Sex: Female
  Weight: 115.5 kg

DRUGS (7)
  1. AVANDIA [Suspect]
     Indication: DIABETES MELLITUS
     Dosage: 4MG Twice per day
     Route: 048
     Dates: start: 19990709, end: 20050401
  2. TOPROL XL [Concomitant]
  3. COZAAR [Concomitant]
  4. ZOCOR [Concomitant]
  5. GLYSET [Concomitant]
  6. PRANDIN [Concomitant]
  7. LANTUS [Concomitant]

REACTIONS (3)
  - Coronary artery disease [Recovering/Resolving]
  - Cardiac failure congestive [Unknown]
  - Vascular graft [Unknown]
